FAERS Safety Report 7491642-8 (Version None)
Quarter: 2011Q2

REPORT INFORMATION
  Report Type: 
  Country: None (occurrence: None)
  Receive Date: 20110519
  Receipt Date: 20110518
  Transmission Date: 20111010
  Serious: Yes (Life-Threatening, Hospitalization, Other)
  Sender: FDA-Public Use
  Company Number: ES-PFIZER INC-2011103179

PATIENT
  Age: 77 Year
  Sex: Male

DRUGS (6)
  1. VOLTAREN [Interacting]
     Indication: BACK PAIN
     Dosage: 150 MG, 1X/DAY
     Route: 048
     Dates: start: 20100515, end: 20100518
  2. LYRICA [Suspect]
     Indication: BACK PAIN
     Dosage: 75 MG, 1X/DAY
     Route: 048
     Dates: start: 20100421, end: 20100513
  3. ALISKIREN/HYDROCHLOROTHIAZIDE [Interacting]
     Indication: HYPERTENSION
     Dosage: 150 MG, 1X/DAY
     Route: 048
     Dates: start: 20100324, end: 20100518
  4. METFORMIN HYDROCHLORIDE [Interacting]
     Indication: TYPE 2 DIABETES MELLITUS
     Dosage: 100 MG, 1X/DAY
     Route: 048
     Dates: start: 20090605, end: 20100518
  5. PLETAL [Concomitant]
     Dosage: 200 MG, 1X/DAY
     Route: 048
     Dates: start: 20100119, end: 20100518
  6. ENANTYUM [Interacting]
     Indication: BACK PAIN
     Dosage: 25 MG, 1X/DAY
     Route: 048
     Dates: start: 20100421, end: 20100518

REACTIONS (5)
  - HYPOTENSION [None]
  - RENAL FAILURE ACUTE [None]
  - ACIDOSIS [None]
  - HEART RATE INCREASED [None]
  - DRUG INTERACTION [None]
